FAERS Safety Report 23298290 (Version 1)
Quarter: 2023Q4

REPORT INFORMATION
  Report Type: Report from Study
  Country: CA (occurrence: CA)
  Receive Date: 20231214
  Receipt Date: 20231214
  Transmission Date: 20240110
  Serious: Yes (Other)
  Sender: FDA-Public Use
  Company Number: CA-PFIZER INC-202300318365

PATIENT
  Age: 74 Year
  Sex: Female

DRUGS (2)
  1. ADALIMUMAB [Suspect]
     Active Substance: ADALIMUMAB\ISOPROPYL ALCOHOL
     Indication: Rheumatoid arthritis
     Dosage: 40 MG, 1 EVERY 2 WEEKS
     Route: 065
  2. ADALIMUMAB [Suspect]
     Active Substance: ADALIMUMAB\ISOPROPYL ALCOHOL
     Dosage: UNK
     Route: 065

REACTIONS (6)
  - Diverticulitis [Recovering/Resolving]
  - Conjunctivitis [Recovering/Resolving]
  - Cough [Recovering/Resolving]
  - Pericardial effusion [Recovering/Resolving]
  - Polyarthritis [Recovering/Resolving]
  - Retching [Recovering/Resolving]
